FAERS Safety Report 7956174-9 (Version None)
Quarter: 2011Q4

REPORT INFORMATION
  Report Type: 
  Country: None (occurrence: None)
  Receive Date: 20111114
  Receipt Date: 20111109
  Transmission Date: 20120403
  Serious: Yes (Hospitalization, Other)
  Sender: FDA-Public Use
  Company Number: 2011028871

PATIENT
  Age: 53 Year
  Sex: Female
  Weight: 83.4619 kg

DRUGS (32)
  1. HIZENTRA [Suspect]
     Dosage: (1 GM 5 ML VIAL; 4 SITES OVER 1 HOUR AND 28 MINUTES SUBCUTANEOUS)
     Route: 058
  2. HIZENTRA [Suspect]
     Dosage: (4 GM 20 ML VIAL SUBCUTANEOUS)
     Route: 058
     Dates: start: 20101218
  3. TYLENOL ARTHRITIS (PARACETAMOL) [Concomitant]
  4. VICODIN [Concomitant]
  5. CLONAZEPAM [Concomitant]
  6. VIVELLE-DOT [Concomitant]
  7. TYLENOL W/ CODEINE NO. 3 [Concomitant]
  8. HIZENTRA [Suspect]
     Dosage: (4 GM 20 ML VIAL SUBCUTANEOUS)
     Route: 058
     Dates: start: 20101001
  9. LEXAPRO [Concomitant]
  10. PREDNISONE TAB [Concomitant]
  11. HIZENTRA [Suspect]
     Dosage: (SUBCUTANEOUS)
     Route: 058
  12. HIZENTRA [Suspect]
     Dates: start: 20110903, end: 20110903
  13. HIZENTRA [Suspect]
     Dates: start: 20110903, end: 20110903
  14. RESTASIS [Concomitant]
  15. LIDODERM [Concomitant]
  16. PROBIOTIC (LACTOBACILLUS ACIDOPHILUS) [Concomitant]
  17. LORATADINE [Concomitant]
  18. FLORINEF [Concomitant]
  19. HIZENTRA [Suspect]
     Indication: IMMUNODEFICIENCY COMMON VARIABLE
     Dosage: (9 G 1X/WEEK, 9 G (45 ML) IN 2-4 SITES OVER 1 HOUR SUBCUTANEOUS)
     Route: 058
     Dates: start: 20101218
  20. HIZENTRA [Suspect]
     Dosage: (1 GM 5 ML VIAL SUBCUTANEOUS)
     Route: 058
  21. HIZENTRA [Suspect]
     Dosage: (1 GM 5 ML VIAL SUBCUTANEOUS)
     Route: 058
     Dates: start: 20101218
  22. HIZENTRA [Suspect]
     Dosage: (4 GM 20 ML VIAL; 45 ML IN 4 SITES WITH 600 ML/HR OVER 2 HOURS SUBCUTANEOUS)
     Route: 058
     Dates: start: 20101208
  23. OXYCONTIN [Concomitant]
  24. VITAMIN D [Concomitant]
  25. BACTROBAN [Concomitant]
  26. HIZENTRA [Suspect]
     Dosage: (4 GM 20 ML VIAL; 4 SITES OVER 1 HOUR AND 28 MINUTES SUBCUTANEOUS)
     Route: 058
  27. ZOFRAN [Concomitant]
  28. SYNTHROID [Concomitant]
  29. HIZENTRA [Suspect]
     Dosage: (1 GM 5 ML VIAL; 2-4 SITES IN 1 HOUR SUBCUTANEOUS)
     Route: 058
     Dates: start: 20101001
  30. HIZENTRA [Suspect]
     Dosage: (1 GM 5 ML VIAL; 45 ML IN 4 SITES WITH 600 ML/HR OVER 2 HOURS SUBCUTANEOUS)
     Route: 058
     Dates: start: 20101208
  31. LOTEMAX [Concomitant]
  32. ESTRING [Concomitant]

REACTIONS (17)
  - MALAISE [None]
  - INFLUENZA LIKE ILLNESS [None]
  - PAIN [None]
  - INTERSTITIAL LUNG DISEASE [None]
  - NAUSEA [None]
  - OTITIS MEDIA [None]
  - CHILLS [None]
  - PRODUCTIVE COUGH [None]
  - OTITIS EXTERNA [None]
  - HEADACHE [None]
  - PARONYCHIA [None]
  - HERPES SIMPLEX [None]
  - HYPERHIDROSIS [None]
  - EAR INFECTION FUNGAL [None]
  - DYSPNOEA [None]
  - MUSCULOSKELETAL CHEST PAIN [None]
  - VOMITING [None]
